FAERS Safety Report 15904197 (Version 4)
Quarter: 2019Q1

REPORT INFORMATION
  Report Type: Report from Study
  Country: None (occurrence: US)
  Receive Date: 20190204
  Receipt Date: 20190316
  Transmission Date: 20190417
  Serious: Yes (Other)
  Sender: FDA-Public Use
  Company Number: US-ABBVIE-18K-163-2591287-00

PATIENT
  Sex: Female

DRUGS (3)
  1. HUMIRA [Suspect]
     Active Substance: ADALIMUMAB
     Route: 058
     Dates: start: 20181110, end: 201812
  2. HUMIRA [Suspect]
     Active Substance: ADALIMUMAB
     Indication: RHEUMATOID ARTHRITIS
     Route: 058
  3. HUMIRA [Suspect]
     Active Substance: ADALIMUMAB
     Route: 058

REACTIONS (20)
  - Joint swelling [Unknown]
  - Ligament sprain [Unknown]
  - Gait inability [Unknown]
  - Loss of personal independence in daily activities [Unknown]
  - Pain [Unknown]
  - Pain in extremity [Recovered/Resolved]
  - Loss of personal independence in daily activities [Recovered/Resolved]
  - Drug ineffective [Unknown]
  - Menopause [Unknown]
  - Osteoporosis [Unknown]
  - Peripheral swelling [Unknown]
  - Oropharyngeal pain [Recovered/Resolved]
  - Impaired self-care [Unknown]
  - Pain in extremity [Unknown]
  - Hyperhidrosis [Unknown]
  - Hypersensitivity [Recovered/Resolved]
  - Mobility decreased [Unknown]
  - Arthralgia [Unknown]
  - Systemic lupus erythematosus [Unknown]
  - Gait disturbance [Unknown]

NARRATIVE: CASE EVENT DATE: 2018
